FAERS Safety Report 10262126 (Version 1)
Quarter: 2014Q2

REPORT INFORMATION
  Report Type: Spontaneous
  Country: GB (occurrence: GB)
  Receive Date: 20140626
  Receipt Date: 20140626
  Transmission Date: 20141212
  Serious: Yes (Life-Threatening)
  Sender: FDA-Public Use
  Company Number: GB-ACTAVIS-2014-13453

PATIENT
  Age: 5 Year
  Sex: Female
  Weight: 18 kg

DRUGS (1)
  1. IBUPROFEN (UNKNOWN) [Suspect]
     Indication: TONSILLITIS
     Dosage: 150 MG, TID. 7.5ML TID = 150MG TID 3 DOSES PRE REACTION, THEN 3 DOSES POST REACTION
     Route: 048
     Dates: start: 20140521

REACTIONS (2)
  - Toxic epidermal necrolysis [Not Recovered/Not Resolved]
  - Blister [Unknown]
